FAERS Safety Report 9598150 (Version 1)
Quarter: 2013Q4

REPORT INFORMATION
  Report Type: Spontaneous
  Country: US (occurrence: US)
  Receive Date: 20131004
  Receipt Date: 20131004
  Transmission Date: 20140711
  Serious: No
  Sender: FDA-Public Use
  Company Number: US-AMGEN-USASP2013022081

PATIENT
  Age: 47 Year
  Sex: Male
  Weight: 108.84 kg

DRUGS (10)
  1. ENBREL [Suspect]
     Indication: PRODUCT USED FOR UNKNOWN INDICATION
     Dosage: 50 MG, QWK
     Route: 058
  2. ZOLPIDEM [Concomitant]
     Dosage: 5 MG, UNK
  3. METHOTREXATE [Concomitant]
     Dosage: 2.5 MG, UNK
  4. NAPROXEN [Concomitant]
     Dosage: 250 MG, UNK
  5. HYDROCORTISONE [Concomitant]
     Dosage: 5-500 MG, UNK
  6. NIASPAN [Concomitant]
     Dosage: 500 MG,  (ER) UNK
  7. LOVAZA [Concomitant]
     Dosage: 1 G, UNK
  8. OMEPRAZOLE [Concomitant]
     Dosage: 10 MG, UNK
  9. LACTAID [Concomitant]
     Dosage: 3000 UNIT, UNK
  10. SIMPONI [Concomitant]
     Dosage: UNK

REACTIONS (1)
  - Drug ineffective [Unknown]
